FAERS Safety Report 4421230-9 (Version None)
Quarter: 2004Q3

REPORT INFORMATION
  Report Type: 
  Country: None (occurrence: None)
  Receive Date: 20040708
  Receipt Date: 20031230
  Transmission Date: 20050211
  Serious: No
  Sender: FDA-Public Use
  Company Number: US062629

PATIENT
  Age: 9 Year
  Sex: Male

DRUGS (1)
  1. KINERET [Suspect]
     Indication: DRUG USE FOR UNKNOWN INDICATION
     Dates: start: 20031216

REACTIONS (1)
  - INJECTION SITE REACTION [None]
